FAERS Safety Report 20908710 (Version 1)
Quarter: 2022Q2

REPORT INFORMATION
  Report Type: Other
  Country: US (occurrence: None)
  Receive Date: 20220603
  Receipt Date: 20220603
  Transmission Date: 20220721
  Serious: Yes (Hospitalization, Other)
  Sender: FDA-Public Use
  Company Number: US-Umedica-000269

PATIENT
  Age: 61 Year
  Sex: Male

DRUGS (3)
  1. CARBAMAZEPINE [Interacting]
     Active Substance: CARBAMAZEPINE
     Indication: Product used for unknown indication
  2. COLCHICINE [Interacting]
     Active Substance: COLCHICINE
     Indication: Product used for unknown indication
     Dosage: 0.6 MG TWICE DAILY
  3. IBUPROFEN [Concomitant]
     Active Substance: IBUPROFEN
     Indication: Product used for unknown indication
     Dosage: 800 MG THREE TIMES DAILY.

REACTIONS (4)
  - Drug interaction [Unknown]
  - Myopathy [Unknown]
  - Acute generalised exanthematous pustulosis [Unknown]
  - Drug level below therapeutic [Unknown]
